FAERS Safety Report 14774293 (Version 1)
Quarter: 2018Q2

REPORT INFORMATION
  Report Type: Spontaneous
  Country: US (occurrence: US)
  Receive Date: 20180418
  Receipt Date: 20180418
  Transmission Date: 20180711
  Serious: Yes (Other)
  Sender: FDA-Public Use
  Company Number: US-PFIZER INC-2016485599

PATIENT
  Age: 70 Year
  Sex: Male

DRUGS (20)
  1. DEMADEX [Concomitant]
     Active Substance: TORSEMIDE
     Dosage: UNK, 1X/DAY (100MG, TAKE ONE + ONE-HALF TABLET IN THE MORNING)
     Route: 048
     Dates: start: 20160620
  2. COUMADINE [Concomitant]
     Active Substance: WARFARIN SODIUM
     Dosage: 5 MG, 1X/DAY (NIGHTLY)
     Route: 048
     Dates: start: 20160130
  3. LANOXIN [Concomitant]
     Active Substance: DIGOXIN
     Dosage: 125 UG, 1X/DAY
     Route: 048
     Dates: start: 20141030
  4. FERROUS SULFATE. [Concomitant]
     Active Substance: FERROUS SULFATE
     Dosage: 325 MG, DAILY(WITH BREAKFAST)
     Route: 048
  5. REVATIO [Suspect]
     Active Substance: SILDENAFIL CITRATE
     Dosage: 20 MG, 3X/DAY
     Route: 048
     Dates: start: 20160910
  6. PRAVACHOL [Concomitant]
     Active Substance: PRAVASTATIN SODIUM
     Dosage: 40 MG, 1X/DAY (EVERY MORNING)
     Route: 048
  7. AMBIEN CR [Concomitant]
     Active Substance: ZOLPIDEM TARTRATE
     Indication: SLEEP DISORDER
     Dosage: 6.25 MG, AS NEEDED
     Route: 048
     Dates: start: 20161010
  8. TOPROL XL [Concomitant]
     Active Substance: METOPROLOL SUCCINATE
     Dosage: 100 MG, DAILY
     Route: 048
     Dates: start: 20160419
  9. TYLENOL [Concomitant]
     Active Substance: ACETAMINOPHEN
     Dosage: 650 MG, AS NEEDED (EVERY 6 HOURS)
     Route: 048
  10. KLOR-CON [Concomitant]
     Active Substance: POTASSIUM CHLORIDE
     Dosage: 20 MEQ, 1X/DAY (EVERY MORNING)
     Route: 048
  11. REVATIO [Suspect]
     Active Substance: SILDENAFIL CITRATE
     Indication: PULMONARY ARTERIAL HYPERTENSION
     Dosage: 20 MG, 3 TABLETS (60 MG) 3X/DAY
     Route: 048
     Dates: start: 20151019
  12. ALDACTONE [Concomitant]
     Active Substance: SPIRONOLACTONE
     Dosage: 100 MG, TWO TABLETS ONCE DAILY IN THE MORNING
     Route: 048
     Dates: start: 20151027
  13. ORENITRAM [Concomitant]
     Active Substance: TREPROSTINIL
     Dosage: 15 MG, 3X/DAY
     Route: 048
     Dates: start: 20160115
  14. TAPAZOLE [Concomitant]
     Active Substance: METHIMAZOLE
     Dosage: 5 MG, 1X/DAY (EVERY MORNING)
     Route: 048
  15. IMODIUM MULTI-SYMPTOM RELIEF [Concomitant]
     Active Substance: DIMETHICONE\LOPERAMIDE HYDROCHLORIDE
     Dosage: UNK, DAILY (2-125 MG TABS, 1-2 TABS EVERYDAY)
     Dates: start: 20091022
  16. CHOLECALCIFEROL [Concomitant]
     Active Substance: CHOLECALCIFEROL
     Dosage: 1000 IU, 1X/DAY (EVERY EVENING)
     Route: 048
  17. K-DUR [Concomitant]
     Active Substance: POTASSIUM CHLORIDE
     Dosage: 20 MEQ, 1X/DAY (EVERY MORNING)
     Route: 048
  18. PHENERGAN [Concomitant]
     Active Substance: PROMETHAZINE HYDROCHLORIDE
     Indication: NAUSEA
     Dosage: 25 MG, AS NEEDED, (4-6 HOURS)
     Route: 048
     Dates: start: 20160721
  19. ZYLOPRIM [Concomitant]
     Active Substance: ALLOPURINOL
     Dosage: 200 MG, 1X/DAY (100MG, 2 TABS DAILY)
     Route: 048
  20. PRILOSEC [Concomitant]
     Active Substance: OMEPRAZOLE MAGNESIUM
     Dosage: 20 MG, DAILY
     Route: 048

REACTIONS (3)
  - Cardiac discomfort [Unknown]
  - Pulmonary arterial pressure increased [Unknown]
  - Product use issue [Unknown]

NARRATIVE: CASE EVENT DATE: 20151019
